FAERS Safety Report 7508730-X (Version None)
Quarter: 2011Q2

REPORT INFORMATION
  Report Type: 
  Country: None (occurrence: None)
  Receive Date: 20110527
  Receipt Date: 20101014
  Transmission Date: 20111010
  Serious: No
  Sender: FDA-Public Use
  Company Number: A0886731A

PATIENT
  Age: 86 Year
  Sex: Female

DRUGS (4)
  1. VENTOLIN [Suspect]
     Indication: CHRONIC OBSTRUCTIVE PULMONARY DISEASE
     Dosage: 2PUFF AS REQUIRED
     Route: 055
     Dates: start: 20091230
  2. INDAPAMIDE [Concomitant]
  3. LISINOPRIL [Concomitant]
  4. DIAZEPAM [Concomitant]

REACTIONS (3)
  - PRODUCT QUALITY ISSUE [None]
  - THERAPEUTIC RESPONSE DECREASED [None]
  - DRUG INEFFECTIVE [None]
